FAERS Safety Report 23080792 (Version 1)
Quarter: 2023Q4

REPORT INFORMATION
  Report Type: Spontaneous
  Country: US (occurrence: None)
  Receive Date: 20231018
  Receipt Date: 20231018
  Transmission Date: 20240110
  Serious: Yes (Hospitalization)
  Sender: FDA-Public Use
  Company Number: None

PATIENT
  Age: 69 Year
  Sex: Male
  Weight: 93.8 kg

DRUGS (1)
  1. LEVETIRACETAM [Suspect]
     Active Substance: LEVETIRACETAM
     Dosage: FREQUENCY : TWICE A DAY;?
     Route: 048
     Dates: start: 20210920, end: 20221113

REACTIONS (5)
  - Encephalopathy [None]
  - Agitation [None]
  - Confusional state [None]
  - Delirium [None]
  - Hallucination [None]

NARRATIVE: CASE EVENT DATE: 20221113
